FAERS Safety Report 6774609-4 (Version None)
Quarter: 2010Q2

REPORT INFORMATION
  Report Type: 
  Country: None (occurrence: None)
  Receive Date: 20100617
  Receipt Date: 20100608
  Transmission Date: 20101027
  Serious: Yes (Hospitalization, Other)
  Sender: FDA-Public Use
  Company Number: US-ROCHE-643489

PATIENT
  Age: 53 Year
  Sex: Male
  Weight: 112.1 kg

DRUGS (22)
  1. MYCOPHENOLATE MOFETIL [Suspect]
     Route: 048
     Dates: start: 20080912
  2. BACTRIM [Suspect]
     Indication: DRUG USE FOR UNKNOWN INDICATION
     Route: 048
     Dates: start: 20080913
  3. PREDNISONE [Suspect]
     Route: 048
     Dates: start: 20081110, end: 20081214
  4. PREDNISONE [Suspect]
     Route: 048
     Dates: start: 20081215, end: 20081217
  5. PREDNISONE [Suspect]
     Route: 048
     Dates: start: 20081218
  6. CYCLOSPORINE [Suspect]
     Route: 048
     Dates: start: 20080912, end: 20081215
  7. DOCUSATE SODIUM [Concomitant]
     Dates: start: 20080911, end: 20080919
  8. ESOMEPRAZOLE [Concomitant]
     Dates: start: 20080912
  9. LISINOPRIL [Concomitant]
     Dates: start: 20080912
  10. AMLODIPINE [Concomitant]
     Dates: start: 20080912
  11. ACETAMINOPHEN [Concomitant]
     Dates: start: 20080912, end: 20080919
  12. NYSTATIN [Concomitant]
     Dates: start: 20080912
  13. VALGANCICLOVIR [Concomitant]
     Dates: start: 20080912
  14. HYDRAZINE [Concomitant]
     Dates: start: 20080914
  15. METOPROLOL [Concomitant]
     Dates: start: 20080912, end: 20080925
  16. METOPROLOL [Concomitant]
     Dates: start: 20081208
  17. FUROSEMIDE [Concomitant]
     Dates: start: 20080914, end: 20080925
  18. ISOSORBIDE MONONITRATE [Concomitant]
     Dates: start: 20080925
  19. CLONIDINE [Concomitant]
     Dates: start: 20080930, end: 20080930
  20. KAYEXALATE [Concomitant]
     Dates: start: 20080930, end: 20080930
  21. BASILIXIMAB [Concomitant]
     Dates: start: 20080913
  22. COTRIM [Concomitant]
     Dates: start: 20081016

REACTIONS (5)
  - ABDOMINAL DISTENSION [None]
  - BLOOD CREATININE INCREASED [None]
  - DYSPNOEA [None]
  - HYPERKALAEMIA [None]
  - TRANSPLANT REJECTION [None]
